FAERS Safety Report 7849720-7 (Version None)
Quarter: 2011Q4

REPORT INFORMATION
  Report Type: 
  Country: None (occurrence: None)
  Receive Date: 20111021
  Receipt Date: 20111007
  Transmission Date: 20120403
  Serious: Yes (Other)
  Sender: FDA-Public Use
  Company Number: 1000024368

PATIENT
  Age: 80 Year
  Sex: Male
  Weight: 77 kg

DRUGS (7)
  1. RAMIPRIL [Concomitant]
  2. ROFLUMILAST (ROFLUMILAST) (TABLETS) [Suspect]
     Indication: CHRONIC OBSTRUCTIVE PULMONARY DISEASE
     Dosage: 500 MCG (500 MCG, 1 IN 1 D), ORAL
     Route: 048
     Dates: start: 20110312, end: 20110322
  3. THEOPHYLLINE [Concomitant]
  4. FORMOTOP (FORMOTEROL FUMARATE) (FORMOTEROL FUMARATE) [Concomitant]
  5. ALLOPURINOL [Concomitant]
  6. BUDECORT (BUDESONIDE) (BUDESONIDE) [Concomitant]
  7. SPIRIVA (TIOTROPIUM BROMIDE) (TIOTROPIUM BROMIDE) [Concomitant]

REACTIONS (12)
  - ABDOMINAL DISCOMFORT [None]
  - CORONARY ARTERY DISEASE [None]
  - PHOTOPSIA [None]
  - NAUSEA [None]
  - DECREASED APPETITE [None]
  - HYPERHIDROSIS [None]
  - VISUAL IMPAIRMENT [None]
  - AGEUSIA [None]
  - PULMONARY FIBROSIS [None]
  - AUTONOMIC NERVOUS SYSTEM IMBALANCE [None]
  - CIRCULATORY COLLAPSE [None]
  - AORTIC VALVE INCOMPETENCE [None]
